FAERS Safety Report 9372233 (Version 1)
Quarter: 2013Q2

REPORT INFORMATION
  Report Type: Report from Study
  Country: US (occurrence: US)
  Receive Date: 20130627
  Receipt Date: 20130627
  Transmission Date: 20140414
  Serious: Yes (Death, Hospitalization)
  Sender: FDA-Public Use
  Company Number: US-MYLANLABS-2012S1017652

PATIENT
  Age: 60 Year
  Sex: Male

DRUGS (5)
  1. CLOZAPINE TABLETS [Suspect]
     Route: 048
  2. CLOZAPINE TABLETS [Suspect]
     Route: 048
  3. CLOZAPINE TABLETS [Suspect]
     Route: 048
  4. NEXIUM [Concomitant]
  5. LAMICTAL [Concomitant]

REACTIONS (1)
  - Coma [Fatal]
